FAERS Safety Report 20660748 (Version 1)
Quarter: 2022Q1

REPORT INFORMATION
  Report Type: Spontaneous
  Country: ET (occurrence: ET)
  Receive Date: 20220331
  Receipt Date: 20220331
  Transmission Date: 20220424
  Serious: Yes (Hospitalization, Other)
  Sender: FDA-Public Use
  Company Number: ET-LUPIN PHARMACEUTICALS INC.-2022-04634

PATIENT
  Age: 23 Year
  Sex: Female

DRUGS (1)
  1. MISOPROSTOL [Suspect]
     Active Substance: MISOPROSTOL
     Indication: Abortion induced
     Dosage: UNK, VAGINAL MISOPROSTOL 200 (UNIT NOT STATED) EVERY 4 HOURS FOR A TOTAL OF 5 DOSES
     Route: 067
     Dates: start: 202007, end: 202007

REACTIONS (3)
  - Uterine rupture [Recovering/Resolving]
  - Exposure during pregnancy [Unknown]
  - Off label use [Unknown]

NARRATIVE: CASE EVENT DATE: 20200701
